FAERS Safety Report 22141351 (Version 1)
Quarter: 2023Q1

REPORT INFORMATION
  Report Type: Spontaneous
  Country: US (occurrence: None)
  Receive Date: 20230325
  Receipt Date: 20230325
  Transmission Date: 20230418
  Serious: Yes (Disabling, Other)
  Sender: FDA-Public Use
  Company Number: None

PATIENT
  Age: 67 Year
  Sex: Female
  Weight: 38.7 kg

DRUGS (1)
  1. GABAPENTIN [Suspect]
     Active Substance: GABAPENTIN
     Indication: Neuropathy peripheral
     Dosage: OTHER QUANTITY : 1 CAPSULE(S);?FREQUENCY : AT BEDTIME;?
     Route: 048
     Dates: start: 20030401, end: 20230325

REACTIONS (3)
  - Dental restoration failure [None]
  - Memory impairment [None]
  - Alopecia [None]

NARRATIVE: CASE EVENT DATE: 20040710
